FAERS Safety Report 11773989 (Version 2)
Quarter: 2015Q4

REPORT INFORMATION
  Report Type: Spontaneous
  Country: US (occurrence: US)
  Receive Date: 20151124
  Receipt Date: 20151210
  Transmission Date: 20160304
  Serious: Yes (Other)
  Sender: FDA-Public Use
  Company Number: US-BRISTOL-MYERS SQUIBB COMPANY-BMS-2015-080024

PATIENT
  Sex: Female

DRUGS (2)
  1. TENORMIN [Concomitant]
     Active Substance: ATENOLOL
     Indication: PRODUCT USED FOR UNKNOWN INDICATION
     Route: 065
  2. ELIQUIS [Suspect]
     Active Substance: APIXABAN
     Indication: CEREBROVASCULAR ACCIDENT PROPHYLAXIS
     Dosage: 2.5 MG, BID
     Route: 048
     Dates: start: 201510

REACTIONS (6)
  - Gastrointestinal disorder [Unknown]
  - Nausea [Unknown]
  - Dysgeusia [Unknown]
  - Gastritis [Not Recovered/Not Resolved]
  - Faeces discoloured [Unknown]
  - Hyperchlorhydria [Unknown]
